FAERS Safety Report 5626802-1 (Version None)
Quarter: 2008Q1

REPORT INFORMATION
  Report Type: 
  Country: None (occurrence: None)
  Receive Date: 20080212
  Receipt Date: 20080206
  Transmission Date: 20080703
  Serious: Yes (Other)
  Sender: FDA-Public Use
  Company Number: CHPA2008US02311

PATIENT
  Age: 17 Year
  Sex: Male

DRUGS (1)
  1. THERAFLU NIGHTTIME SEVERE COLD WARMING SYRUP (NCH)(PARACETAMOL, DIPHEN [Suspect]
     Indication: PYREXIA
     Dosage: 6 TSP, Q4H, ORAL
     Route: 048
     Dates: start: 20080205

REACTIONS (3)
  - ABNORMAL BEHAVIOUR [None]
  - HALLUCINATION [None]
  - SPEECH DISORDER [None]
